FAERS Safety Report 8032535-7 (Version None)
Quarter: 2011Q4

REPORT INFORMATION
  Report Type: 
  Country: None (occurrence: None)
  Receive Date: 20111202
  Receipt Date: 20110217
  Transmission Date: 20120403
  Serious: Yes (Hospitalization)
  Sender: FDA-Public Use
  Company Number: WAES 1102USA02152

PATIENT
  Sex: Female

DRUGS (1)
  1. FOSAMAX [Suspect]

REACTIONS (3)
  - LUNG DISORDER [None]
  - ADVERSE EVENT [None]
  - COMPRESSION FRACTURE [None]
